FAERS Safety Report 8321453-2 (Version None)
Quarter: 2012Q2

REPORT INFORMATION
  Report Type: 
  Country: None (occurrence: None)
  Receive Date: 20120430
  Receipt Date: 20120423
  Transmission Date: 20120825
  Serious: Yes (Hospitalization)
  Sender: FDA-Public Use
  Company Number: BR-ASTRAZENECA-2012SE27111

PATIENT
  Age: 78 Year
  Sex: Male
  Weight: 69 kg

DRUGS (7)
  1. ATACAND [Suspect]
     Indication: HYPERTENSION
     Route: 048
     Dates: start: 20090101, end: 20110101
  2. ATACAND [Suspect]
     Route: 048
     Dates: start: 20110101, end: 20120301
  3. CRESTOR [Suspect]
     Indication: BLOOD CHOLESTEROL INCREASED
     Route: 048
     Dates: start: 20110101
  4. AMIODARONE HYDROCHLORIDE [Concomitant]
     Route: 048
     Dates: start: 20020101
  5. ATACAND [Suspect]
     Route: 048
     Dates: start: 20120301, end: 20120401
  6. SOMALGIN CARDIO [Concomitant]
     Route: 048
     Dates: start: 19960101
  7. BISOPROLOL FUMARATE [Concomitant]
     Route: 048
     Dates: start: 20020101

REACTIONS (3)
  - MYOCARDIAL INFARCTION [None]
  - PHYSICAL EXAMINATION ABNORMAL [None]
  - BLOOD CHOLESTEROL INCREASED [None]
